FAERS Safety Report 7367574-2 (Version None)
Quarter: 2011Q1

REPORT INFORMATION
  Report Type: 
  Country: None (occurrence: None)
  Receive Date: 20110322
  Receipt Date: 20110317
  Transmission Date: 20110831
  Serious: Yes (Other)
  Sender: FDA-Public Use
  Company Number: US-AMGEN-USASP2011014896

PATIENT

DRUGS (2)
  1. PROLIA [Suspect]
     Indication: PRODUCT USED FOR UNKNOWN INDICATION
  2. BONIVA [Suspect]

REACTIONS (3)
  - OESOPHAGEAL PERFORATION [None]
  - POST PROCEDURAL INFECTION [None]
  - NAIL OPERATION [None]
